FAERS Safety Report 4663842-3 (Version None)
Quarter: 2005Q2

REPORT INFORMATION
  Report Type: 
  Country: None (occurrence: None)
  Receive Date: 20050516
  Receipt Date: 20050426
  Transmission Date: 20051028
  Serious: Yes (Hospitalization)
  Sender: FDA-Public Use
  Company Number: 2004028745

PATIENT
  Age: 60 Year
  Sex: Male

DRUGS (6)
  1. ATORVASTATIN CALCIUM [Suspect]
     Indication: DYSLIPIDAEMIA
     Dosage: 10 MG (10 MG, 1 IN 1 D), ORAL
     Route: 048
     Dates: start: 20040401
  2. CAPTOPRIL [Concomitant]
  3. ISOSORBIDE MONONITRATE [Concomitant]
  4. TICLOPIDINE (TICLOPIDINE) [Concomitant]
  5. CARVEDILOL [Concomitant]
  6. ENALAPRIL MALEATE [Concomitant]

REACTIONS (2)
  - ARRHYTHMIA [None]
  - MYOCARDIAL INFARCTION [None]
